FAERS Safety Report 8230674-9 (Version None)
Quarter: 2012Q1

REPORT INFORMATION
  Report Type: 
  Country: None (occurrence: None)
  Receive Date: 20120321
  Receipt Date: 20120311
  Transmission Date: 20120608
  Serious: Yes (Hospitalization)
  Sender: FDA-Public Use
  Company Number: JPI-P-020160

PATIENT
  Age: 30 Year
  Sex: Female

DRUGS (3)
  1. ALCOHOL [Suspect]
     Indication: ALCOHOL USE
  2. BENZODIAZEPINE [Suspect]
     Indication: BELLIGERENCE
  3. XYREM [Suspect]
     Indication: NARCOLEPSY
     Dosage: 5 GM (2.5 GM,2 IN 1 D),ORAL
     Route: 048
     Dates: start: 20090310

REACTIONS (2)
  - BELLIGERENCE [None]
  - RESPIRATORY DISTRESS [None]
